FAERS Safety Report 21090944 (Version 1)
Quarter: 2022Q3

REPORT INFORMATION
  Report Type: Spontaneous
  Country: FR (occurrence: FR)
  Receive Date: 20220716
  Receipt Date: 20220716
  Transmission Date: 20221026
  Serious: Yes (Hospitalization)
  Sender: FDA-Public Use
  Company Number: None

PATIENT
  Age: 68 Year
  Sex: Male
  Weight: 86.95 kg

DRUGS (8)
  1. IRBESARTAN [Interacting]
     Active Substance: IRBESARTAN
     Indication: Hypertension
     Dosage: UNIT DOSE: 150 MG, FREQUENCY TIME : 1 DAY, THERAPY START DATE : ASKU
     Dates: end: 20220606
  2. INDAPAMIDE [Suspect]
     Active Substance: INDAPAMIDE
     Indication: Hypertension
     Dosage: UNIT DOSE: 1.5 MG, THERAPY START DATE : ASKU, FREQUENCY TIME : 1 DAY
     Dates: end: 20220606
  3. KETOPROFEN [Interacting]
     Active Substance: KETOPROFEN
     Indication: Product used for unknown indication
     Dates: start: 202206, end: 202206
  4. LIPTRUZET [Concomitant]
     Active Substance: ATORVASTATIN CALCIUM\EZETIMIBE
     Indication: Product used for unknown indication
     Dosage: LIPTRUZET 10 MG/40 MG FILM-COATED TABLETS, THERAPY START DATE : ASKU, UNIT DOSE: 1 DF, FREQUENCY TIM
     Dates: end: 20220606
  5. METFORMIN HYDROCHLORIDE [Concomitant]
     Active Substance: METFORMIN HYDROCHLORIDE
     Indication: Product used for unknown indication
     Dosage: UNIT DOSE: 1000 MG, FREQUENCY TIME : 1 DAY, THERAPY START DATE : ASKU
     Dates: end: 20220606
  6. BISOPROLOL [Concomitant]
     Active Substance: BISOPROLOL
     Indication: Product used for unknown indication
     Dosage: BISOCE 5 MG, SCORED FILM-COATED TABLET, THERAPY START DATE : ASKU, FREQUENCY TIME : 1 DAY
     Dates: end: 20220606
  7. POTASSIUM CHLORIDE [Concomitant]
     Active Substance: POTASSIUM CHLORIDE
     Indication: Product used for unknown indication
     Dosage: DIFFU K, THERAPY START DATE : ASKU, UNIT DOSE: 1200 MG, FREQUENCY TIME : 1 DAY
  8. JANUMET [Concomitant]
     Active Substance: METFORMIN HYDROCHLORIDE\SITAGLIPTIN PHOSPHATE
     Indication: Product used for unknown indication
     Dosage: STRENGTH: 50 MG/1000 MG , FREQUENCY TIME : 1 DAY, UNIT DOSE : 2 DF, THERAPY START DATE : ASKU
     Dates: end: 20220606

REACTIONS (2)
  - Acute kidney injury [Recovering/Resolving]
  - Drug interaction [Recovering/Resolving]

NARRATIVE: CASE EVENT DATE: 20220605
